FAERS Safety Report 4602055-8 (Version None)
Quarter: 2005Q1

REPORT INFORMATION
  Report Type: 
  Country: None (occurrence: None)
  Receive Date: 20050308
  Receipt Date: 20041227
  Transmission Date: 20050727
  Serious: Yes (Life-Threatening, Hospitalization, Disabling)
  Sender: FDA-Public Use
  Company Number: US-MERCK-0412USA02920

PATIENT
  Age: 58 Year
  Sex: Female

DRUGS (12)
  1. VIOXX [Suspect]
     Indication: OSTEOARTHRITIS
     Route: 048
     Dates: start: 20030410, end: 20030926
  2. GLUCOPHAGE [Concomitant]
     Route: 065
  3. LEXAPRO [Concomitant]
     Indication: FIBROMYALGIA
     Route: 048
     Dates: start: 20030324, end: 20030926
  4. LEXAPRO [Concomitant]
     Route: 065
     Dates: start: 20030926, end: 20040101
  5. LEXAPRO [Concomitant]
     Route: 065
     Dates: start: 20040607
  6. ALPRAZOLAM [Concomitant]
     Route: 065
  7. PREMARIN [Concomitant]
     Route: 065
  8. AMBIEN [Concomitant]
     Route: 065
  9. NIFEDIPINE [Concomitant]
     Route: 065
  10. LISINOPRIL [Concomitant]
     Route: 065
  11. LASIX [Concomitant]
     Route: 065
  12. CALCIUM (UNSPECIFIED) [Concomitant]
     Route: 065

REACTIONS (5)
  - CARDIAC ARREST [None]
  - HYPERCALCAEMIA [None]
  - HYPERTENSION [None]
  - RHEUMATOID ARTHRITIS [None]
  - VAGINAL HAEMORRHAGE [None]
